FAERS Safety Report 17903183 (Version 1)
Quarter: 2020Q2

REPORT INFORMATION
  Report Type: Spontaneous
  Country: US (occurrence: US)
  Receive Date: 20200617
  Receipt Date: 20200617
  Transmission Date: 20200714
  Serious: Yes (Hospitalization, Other)
  Sender: FDA-Public Use
  Company Number: US-AUROBINDO-AUR-APL-2019-078152

PATIENT
  Age: 46 Year
  Sex: Male

DRUGS (3)
  1. TUMS [Suspect]
     Active Substance: CALCIUM CARBONATE
     Indication: ABDOMINAL PAIN UPPER
     Dosage: 15000MG PER DAY (30 TABLETS)
     Route: 048
  2. HYDROCHLOROTHIAZIDE. [Suspect]
     Active Substance: HYDROCHLOROTHIAZIDE
     Indication: HYPERTENSION
     Dosage: UNK
     Route: 065
  3. TUMS [Suspect]
     Active Substance: CALCIUM CARBONATE
     Indication: CHEST PAIN
     Dosage: 30 DOSAGE FORM, ONCE A DAY
     Route: 048

REACTIONS (6)
  - Bundle branch block left [Recovered/Resolved]
  - Acute kidney injury [Unknown]
  - Hypercalcaemia [Recovered/Resolved]
  - Overdose [Unknown]
  - Milk-alkali syndrome [Recovered/Resolved]
  - Electrocardiogram ST segment elevation [Recovered/Resolved]
